FAERS Safety Report 8932866 (Version 1)
Quarter: 2012Q4

REPORT INFORMATION
  Report Type: 
  Country: JP (occurrence: JP)
  Receive Date: 20121128
  Receipt Date: 20121128
  Transmission Date: 20130627
  Serious: Yes (Hospitalization)
  Sender: FDA-Public Use
  Company Number: JP-OTSUKA-JP-2012-15179

PATIENT
  Age: 73 Year
  Sex: Female
  Weight: 44 kg

DRUGS (28)
  1. SAMSCA [Suspect]
     Indication: CARDIAC FAILURE
     Dosage: 7.5 Mg milligram(s), qd
     Route: 048
     Dates: start: 20111029
  2. SAMSCA [Suspect]
     Dosage: 7.5 Mg milligram(s), qam
     Route: 048
     Dates: start: 20120202
  3. PLETAAL [Suspect]
     Indication: CORONARY ARTERY BYPASS
     Dosage: 200 Mg milligram(s), daily dose
     Route: 048
     Dates: start: 20110106
  4. WARFARIN [Suspect]
     Indication: ATRIAL FIBRILLATION
     Dosage: 2 Mg milligram(s), qd
     Route: 048
     Dates: start: 20110106
  5. BAYASPIRIN [Suspect]
     Indication: ATRIAL FIBRILLATION
     Dosage: 100 Mg milligram(s), qd
     Route: 048
     Dates: start: 20110106
  6. EQUA [Suspect]
     Indication: DIABETES MELLITUS
     Dosage: 25 Mg milligram(s), qd
     Route: 048
     Dates: start: 20111110
  7. ESPO [Concomitant]
     Dosage: 6 Kiu iu(1000s), daily dose
     Dates: start: 20100826, end: 20100924
  8. NESP [Concomitant]
     Dosage: 30 mcg, daily dose
     Dates: start: 20101007, end: 20101219
  9. NESP [Concomitant]
     Dosage: 30 mcg, daily dose
     Dates: start: 20110322, end: 20110426
  10. AMLODIPINE [Concomitant]
     Indication: HYPERTENSION
     Dosage: 5 Mg milligram(s), qd
     Route: 048
     Dates: start: 20110106
  11. LASIX [Concomitant]
     Indication: CARDIAC FAILURE
     Dosage: 10 Mg milligram(s), qod
     Route: 048
     Dates: start: 20110106
  12. MICARDIS [Concomitant]
     Indication: HYPERTENSION
     Dosage: 80 Mg milligram(s), qd
     Route: 048
     Dates: start: 20110106
  13. ATARAX-P [Concomitant]
     Indication: PRURIGO
     Dosage: 25 Mg milligram(s), qpm
     Route: 048
     Dates: start: 20110106
  14. MAGMITT [Concomitant]
     Indication: CONSTIPATION
     Dosage: 1980 Mg milligram(s), daily dose
     Route: 048
     Dates: start: 20110106
  15. POLARAMINE [Concomitant]
     Indication: PRURIGO
     Dosage: 2 Mg milligram(s), tid
     Route: 048
     Dates: start: 20110106
  16. ALESION [Concomitant]
     Indication: HYPERSENSITIVITY
     Dosage: 40 Mg milligram(s), daily dose
     Route: 048
     Dates: start: 20110106
  17. ARGAMATE [Concomitant]
     Indication: HYPERKALAEMIA
     Dosage: 75 G gram(s), daily dose
     Route: 048
     Dates: start: 20110106
  18. PROPETO [Concomitant]
     Indication: PRURIGO
     Dosage: UNK, qs
     Route: 061
     Dates: start: 20110106
  19. RESTAMIN [Concomitant]
     Indication: PRURIGO
     Dosage: UNK, qs
     Route: 061
     Dates: start: 20110106
  20. MYSER [Concomitant]
     Indication: PRURIGO
     Dosage: UNK, qs
     Route: 061
     Dates: start: 20110106
  21. POSTERISAN [Concomitant]
     Indication: PRURIGO
     Dosage: UNK, qs
     Route: 061
     Dates: start: 20110106
  22. LANSOPRAZOLE [Concomitant]
     Indication: GASTRITIS
     Dosage: 15 Mg milligram(s), qd
     Route: 048
     Dates: start: 20110623
  23. LIVALO [Concomitant]
     Indication: DYSLIPIDAEMIA
     Dosage: 1 Mg milligram(s), qd
     Route: 048
     Dates: start: 20110623
  24. SALOBEL [Concomitant]
     Indication: HYPERURICAEMIA
     Dosage: 50 Mg milligram(s), qd
     Route: 048
     Dates: start: 20110623
  25. FERROMIA [Concomitant]
     Indication: IRON DEFICIENCY ANAEMIA
     Dosage: 50 Mg milligram(s), qd
     Route: 048
     Dates: start: 20111222
  26. MIRCERA [Concomitant]
     Dosage: 150 mcg, daily dose
     Dates: start: 20120126, end: 20120126
  27. CONCENTRATED RED CELLS [Concomitant]
     Dosage: 2 Iu, daily dose
     Route: 042
     Dates: start: 20120209, end: 20120326
  28. CONCENTRATED RED CELLS [Concomitant]
     Dosage: 2 Iu, daily dose
     Route: 042
     Dates: start: 20120405, end: 201206

REACTIONS (1)
  - Anaemia [Recovering/Resolving]
